FAERS Safety Report 15459305 (Version 2)
Quarter: 2018Q4

REPORT INFORMATION
  Report Type: Report from Study
  Country: KR (occurrence: KR)
  Receive Date: 20181003
  Receipt Date: 20181205
  Transmission Date: 20190204
  Serious: No
  Sender: FDA-Public Use
  Company Number: KR-CELLTRION INC.-2018KR022725

PATIENT

DRUGS (9)
  1. FOLATE [Concomitant]
     Active Substance: FOLATE SODIUM
     Indication: CROHN^S DISEASE
     Dosage: 1 DF, SINGLE
     Route: 048
     Dates: start: 20180821
  2. BREXIN                             /00020001/ [Concomitant]
     Active Substance: ACETAMINOPHEN
     Indication: JUVENILE IDIOPATHIC ARTHRITIS
     Dosage: 1 DF, SINGLE
     Route: 048
     Dates: start: 20161026, end: 20180918
  3. PENTASA [Concomitant]
     Active Substance: MESALAMINE
     Indication: CROHN^S DISEASE
     Dosage: 500 MG, BID
     Route: 048
     Dates: start: 20180821
  4. REMSIMA [Suspect]
     Active Substance: INFLIXIMAB
     Dosage: 263 MG
     Route: 042
     Dates: start: 20180927, end: 20180927
  5. CURAN [Concomitant]
     Active Substance: RANITIDINE HYDROCHLORIDE
     Indication: CROHN^S DISEASE
     Dosage: 150 MG, BID
     Route: 048
     Dates: start: 20180821
  6. REMSIMA [Suspect]
     Active Substance: INFLIXIMAB
     Indication: CROHN^S DISEASE
     Dosage: 300 MG, SINGLE
     Route: 042
     Dates: start: 20180910, end: 20180910
  7. SOLONDO [Concomitant]
     Active Substance: PREDNISOLONE
     Indication: CROHN^S DISEASE
     Dosage: 40 MG, SINGLE
     Route: 048
     Dates: start: 20180821
  8. METHOTREXATE. [Concomitant]
     Active Substance: METHOTREXATE
     Indication: JUVENILE IDIOPATHIC ARTHRITIS
     Dosage: 5 DF, 1/WEEK
     Route: 048
     Dates: start: 20161026
  9. APLACE [Concomitant]
     Active Substance: TROXIPIDE
     Indication: CROHN^S DISEASE
     Dosage: 100 MG, SINGLE
     Route: 048
     Dates: start: 20180821

REACTIONS (1)
  - Incorrect dose administered [Unknown]
